FAERS Safety Report 15647464 (Version 2)
Quarter: 2018Q4

REPORT INFORMATION
  Report Type: Spontaneous
  Country: US (occurrence: US)
  Receive Date: 20181122
  Receipt Date: 20181126
  Transmission Date: 20190205
  Serious: Yes (Other)
  Sender: FDA-Public Use
  Company Number: US-TEVA-2018-US-977607

PATIENT
  Age: 15 Year
  Sex: Male

DRUGS (3)
  1. FLECAINIDE [Suspect]
     Active Substance: FLECAINIDE
     Indication: SUPRAVENTRICULAR TACHYCARDIA
     Route: 065
  2. ESMOLOL [Suspect]
     Active Substance: ESMOLOL HYDROCHLORIDE
     Indication: SUPRAVENTRICULAR TACHYCARDIA
     Route: 042
  3. MILRINONE [Suspect]
     Active Substance: MILRINONE
     Indication: POLYURIA
     Route: 041

REACTIONS (3)
  - General physical health deterioration [Unknown]
  - Drug ineffective [Unknown]
  - Hypotension [Unknown]
